FAERS Safety Report 20049530 (Version 2)
Quarter: 2022Q1

REPORT INFORMATION
  Report Type: Spontaneous
  Country: PH (occurrence: None)
  Receive Date: 20211109
  Receipt Date: 20220131
  Transmission Date: 20220423
  Serious: Yes (Death)
  Sender: FDA-Public Use
  Company Number: PH-ROCHE-2952431

PATIENT
  Sex: Male
  Weight: 69 kg

DRUGS (1)
  1. ACTEMRA [Suspect]
     Active Substance: TOCILIZUMAB
     Indication: COVID-19
     Dosage: 2 DOSES
     Route: 042
     Dates: start: 20210610, end: 20210611

REACTIONS (6)
  - COVID-19 pneumonia [Fatal]
  - Hypovolaemic shock [Fatal]
  - Gastrointestinal disorder [Fatal]
  - Chronic kidney disease [Fatal]
  - Type 2 diabetes mellitus [Fatal]
  - Off label use [Unknown]
